FAERS Safety Report 5383679-X (Version None)
Quarter: 2007Q3

REPORT INFORMATION
  Report Type: 
  Country: None (occurrence: None)
  Receive Date: 20070706
  Receipt Date: 20070330
  Transmission Date: 20080115
  Serious: Yes (Death, Hospitalization)
  Sender: FDA-Public Use
  Company Number: 2007000583

PATIENT
  Age: 63 Year
  Weight: 48.1 kg

DRUGS (13)
  1. ERLOTINIB (TABLET) [Suspect]
     Indication: NEOPLASM MALIGNANT
     Dosage: 150 MG (QD), ORAL
     Route: 048
     Dates: start: 20070320
  2. BEVACIZUMAB (INJECTION FOR INFUSION) [Suspect]
     Indication: NEOPLASM MALIGNANT
     Dosage: 15 MG/KG (Q3W), INTRAVENOUS
     Route: 042
     Dates: start: 20070320
  3. PACLITAXEL [Suspect]
     Indication: NEOPLASM MALIGNANT
     Dosage: 175 MG/M2 (Q3W), INTRAVENOUS
     Route: 042
     Dates: start: 20070320
  4. CARBOPLATIN (CARBOLATIN) (INJECTION FOR INFUSION) [Suspect]
     Indication: NEOPLASM MALIGNANT
     Dosage: 6 AUC (Q3W), INTRAVENOUS
     Route: 042
     Dates: start: 20070320
  5. DURAGESIC-100 [Concomitant]
  6. OXYCODONE HCL [Concomitant]
  7. AMBIEN CR [Concomitant]
  8. DECADRON [Concomitant]
  9. COMPAZINE [Concomitant]
  10. ZOFRAN [Concomitant]
  11. OXYCONTIN [Concomitant]
  12. DIFLUCAN [Concomitant]
  13. LACTULOSE [Concomitant]

REACTIONS (8)
  - GENERAL PHYSICAL HEALTH DETERIORATION [None]
  - HAEMATOCRIT DECREASED [None]
  - HAEMOGLOBIN DECREASED [None]
  - LARGE INTESTINE PERFORATION [None]
  - NEUTROPENIA [None]
  - PERIDIVERTICULAR ABSCESS [None]
  - PLATELET COUNT DECREASED [None]
  - PNEUMONIA [None]
